FAERS Safety Report 6298381-X (Version None)
Quarter: 2009Q3

REPORT INFORMATION
  Report Type: 
  Country: None (occurrence: None)
  Receive Date: 20090805
  Receipt Date: 20090728
  Transmission Date: 20100115
  Serious: Yes (Other)
  Sender: FDA-Public Use
  Company Number: US-ASTRAZENECA-2009UW21441

PATIENT
  Sex: Female

DRUGS (1)
  1. METOPROLOL SUCCINATE [Suspect]
     Route: 048
     Dates: start: 20090709

REACTIONS (6)
  - HOT FLUSH [None]
  - NAIL DISCOLOURATION [None]
  - NAUSEA [None]
  - PAIN IN EXTREMITY [None]
  - PRESYNCOPE [None]
  - TREMOR [None]
